FAERS Safety Report 19745884 (Version 1)
Quarter: 2021Q3

REPORT INFORMATION
  Report Type: Spontaneous
  Country: AU (occurrence: AU)
  Receive Date: 20210825
  Receipt Date: 20210825
  Transmission Date: 20211014
  Serious: Yes (Death, Other)
  Sender: FDA-Public Use
  Company Number: AU-TEVA-2021-AU-1945276

PATIENT
  Age: 83 Year
  Sex: Female

DRUGS (6)
  1. NAPROXEN. [Suspect]
     Active Substance: NAPROXEN
     Route: 065
  2. DOTHIEPIN HYDROCHLORIDE [Suspect]
     Active Substance: DOTHIEPIN HYDROCHLORIDE
     Route: 065
  3. DIAZEPAM. [Suspect]
     Active Substance: DIAZEPAM
     Route: 065
  4. TEMAZEPAM. [Suspect]
     Active Substance: TEMAZEPAM
     Route: 065
  5. QUETIAPINE. [Suspect]
     Active Substance: QUETIAPINE
     Route: 065
  6. OXAZEPAM. [Suspect]
     Active Substance: OXAZEPAM
     Route: 065

REACTIONS (3)
  - Toxicity to various agents [Fatal]
  - Acute kidney injury [Fatal]
  - Pneumonia aspiration [Fatal]

NARRATIVE: CASE EVENT DATE: 20170828
